FAERS Safety Report 9715696 (Version 1)
Quarter: 2013Q4

REPORT INFORMATION
  Report Type: Report from Study
  Country: GB (occurrence: GB)
  Receive Date: 20131127
  Receipt Date: 20131127
  Transmission Date: 20140711
  Serious: Yes (Hospitalization, Other)
  Sender: FDA-Public Use
  Company Number: GB-ACCORD-020417

PATIENT
  Age: 59 Year
  Sex: Female

DRUGS (10)
  1. METOCHLOPRAMIDE [Concomitant]
     Dosage: AS NECESSARY
     Dates: start: 20130620
  2. NYSTATIN [Concomitant]
     Dosage: DOSE:100000 UNIT(S)
     Dates: start: 20130826
  3. AUGMENTIN [Concomitant]
     Dates: start: 20130826, end: 20130827
  4. FLUCONAZOLE [Concomitant]
     Dates: start: 20130826
  5. DEXAMETHASONE [Concomitant]
     Dates: start: 20130822, end: 20130824
  6. DIFFLAM [Concomitant]
     Indication: THERAPEUTIC GARGLE
     Dates: start: 20130826
  7. PARACETAMOL [Concomitant]
     Dates: start: 20130826, end: 20130829
  8. TRASTUZUMAB [Suspect]
     Indication: BREAST CANCER
     Route: 058
     Dates: start: 20130823
  9. DOCETAXEL [Suspect]
     Indication: BREAST CANCER
     Dosage: FIRST CYCLE
     Dates: start: 20130823
  10. TAZOCIN [Concomitant]
     Dates: start: 20130826, end: 20130828

REACTIONS (2)
  - Cystitis [Recovered/Resolved]
  - Oral candidiasis [Unknown]
